FAERS Safety Report 16857147 (Version 1)
Quarter: 2019Q3

REPORT INFORMATION
  Report Type: Spontaneous
  Country: US (occurrence: US)
  Receive Date: 20190926
  Receipt Date: 20190926
  Transmission Date: 20191005
  Serious: No
  Sender: FDA-Public Use
  Company Number: US-FOUNDATIONCONSUMERHC-2019-US-013729

PATIENT
  Age: 33 Year
  Sex: Female
  Weight: 60.78 kg

DRUGS (2)
  1. TAKE ACTION [Suspect]
     Active Substance: LEVONORGESTREL
     Indication: POST COITAL CONTRACEPTION
     Dosage: 1.5 MG
     Route: 048
     Dates: start: 20190717, end: 20190717
  2. MONISTAT [Suspect]
     Active Substance: MICONAZOLE NITRATE
     Dosage: 1 DOSE
     Route: 067
     Dates: start: 20190718, end: 20190718

REACTIONS (3)
  - Vaginal haemorrhage [Not Recovered/Not Resolved]
  - Back pain [Recovered/Resolved]
  - Vaginal discharge [Recovered/Resolved]

NARRATIVE: CASE EVENT DATE: 20190718
